FAERS Safety Report 7618310-3 (Version None)
Quarter: 2011Q3

REPORT INFORMATION
  Report Type: 
  Country: None (occurrence: None)
  Receive Date: 20110718
  Receipt Date: 20110706
  Transmission Date: 20111222
  Serious: Yes (Hospitalization)
  Sender: FDA-Public Use
  Company Number: JP-ROCHE-785363

PATIENT
  Sex: Male
  Weight: 50 kg

DRUGS (11)
  1. MAGMITT [Concomitant]
     Route: 048
     Dates: start: 20110527, end: 20110529
  2. LORAZEPAM [Concomitant]
     Route: 048
     Dates: start: 20110526, end: 20110528
  3. CISPLATIN [Suspect]
     Indication: GASTRIC CANCER
     Route: 041
     Dates: start: 20110526, end: 20110526
  4. ZOFRAN [Concomitant]
     Route: 048
  5. EMEND [Concomitant]
     Route: 048
     Dates: start: 20110526, end: 20110526
  6. EMEND [Concomitant]
     Route: 048
     Dates: start: 20110527, end: 20110528
  7. DECADRON [Concomitant]
     Route: 048
     Dates: start: 20110527, end: 20110528
  8. XELODA [Suspect]
     Indication: GASTRIC CANCER
     Dosage: ADMINISTERING FOR TWO WEEKS AND ONE WEEKLY HOLIDAY MEDICINE
     Route: 048
     Dates: start: 20110526, end: 20110608
  9. NOVAMIN (PROCHLORPERAZINE) [Concomitant]
     Route: 048
     Dates: start: 20110526, end: 20110528
  10. RESTAMIN [Concomitant]
     Route: 048
     Dates: start: 20110526, end: 20110528
  11. DECADRON [Concomitant]
     Route: 048
     Dates: start: 20110526, end: 20110529

REACTIONS (4)
  - RENAL DISORDER [None]
  - FEBRILE NEUTROPENIA [None]
  - DIARRHOEA [None]
  - THROMBOCYTOPENIA [None]
